FAERS Safety Report 16891068 (Version 1)
Quarter: 2019Q4

REPORT INFORMATION
  Report Type: Report from Study
  Country: ZA (occurrence: ZA)
  Receive Date: 20191007
  Receipt Date: 20191007
  Transmission Date: 20200122
  Serious: Yes (Hospitalization)
  Sender: FDA-Public Use
  Company Number: ZA-B.I. PHARMACEUTICALS,INC./RIDGEFIELD-2019-BI-104978

PATIENT
  Age: 20 Day
  Weight: 1.4 kg

DRUGS (1)
  1. VIRAMUNE [Suspect]
     Active Substance: NEVIRAPINE
     Indication: HIV INFECTION
     Dosage: INFANTS WEIGHING { 1800 G: 2 MG/KG DAILY FOR FIRST 2 WEEKS OF LIFE AND 4 MG/KG THEREAFTER.
     Route: 065

REACTIONS (2)
  - Foetal exposure during pregnancy [Unknown]
  - Perinatal HIV infection [Unknown]
